FAERS Safety Report 5262524-7 (Version None)
Quarter: 2007Q1

REPORT INFORMATION
  Report Type: 
  Country: None (occurrence: None)
  Receive Date: 20070312
  Receipt Date: 20070307
  Transmission Date: 20070707
  Serious: Yes (Death, Hospitalization, Disabling)
  Sender: FDA-Public Use
  Company Number: PHRM2005FR02852

PATIENT
  Age: 66 Year
  Sex: Male
  Weight: 62 kg

DRUGS (7)
  1. ZOMETA [Suspect]
     Indication: METASTASES TO BONE
     Dosage: 4 MG EVERY THREE WEEKS
     Route: 042
     Dates: start: 20030522, end: 20050915
  2. NOVANTRONE [Concomitant]
     Indication: PROSTATE CANCER METASTATIC
     Dosage: UNK, UNK
     Dates: start: 20030601, end: 20031101
  3. TAXOTERE [Concomitant]
     Indication: PROSTATE CANCER METASTATIC
     Dosage: UNK, UNK
     Route: 042
     Dates: start: 20040515, end: 20050415
  4. ESTRACYT /SWE/ [Concomitant]
     Indication: PROSTATE CANCER METASTATIC
     Dosage: 2 DF, BID
     Route: 048
     Dates: start: 20050301, end: 20050801
  5. DIURETICS [Concomitant]
  6. ANDROCUR [Concomitant]
     Indication: METASTASES TO BONE
  7. ZOLADEX [Concomitant]
     Indication: PROSTATE CANCER METASTATIC
     Dates: start: 20050301

REACTIONS (11)
  - CONDITION AGGRAVATED [None]
  - DEATH [None]
  - FEEDING DISORDER [None]
  - FISTULA [None]
  - GINGIVAL ULCERATION [None]
  - ISCHAEMIC CARDIOMYOPATHY [None]
  - JAW OPERATION [None]
  - OSTEITIS [None]
  - OSTEONECROSIS [None]
  - PAIN IN JAW [None]
  - PRIMARY SEQUESTRUM [None]
